FAERS Safety Report 13382665 (Version 1)
Quarter: 2017Q1

REPORT INFORMATION
  Report Type: Spontaneous
  Country: DE (occurrence: DE)
  Receive Date: 20170329
  Receipt Date: 20170329
  Transmission Date: 20170429
  Serious: Yes (Other)
  Sender: FDA-Public Use
  Company Number: DE-009507513-1703DEU011883

PATIENT
  Age: 66 Year
  Sex: Male

DRUGS (6)
  1. RAMIPRIL. [Suspect]
     Active Substance: RAMIPRIL
  2. NEBIVOLOL. [Suspect]
     Active Substance: NEBIVOLOL
  3. GABAPENTIN. [Suspect]
     Active Substance: GABAPENTIN
  4. ASPIRIN. [Suspect]
     Active Substance: ASPIRIN
     Route: 048
  5. HYDROCHLOROTHIAZIDE. [Suspect]
     Active Substance: HYDROCHLOROTHIAZIDE
  6. SIMVASTATIN. [Suspect]
     Active Substance: SIMVASTATIN
     Route: 048

REACTIONS (1)
  - Basal cell carcinoma [Unknown]
